FAERS Safety Report 5427302-4 (Version None)
Quarter: 2007Q3

REPORT INFORMATION
  Report Type: 
  Country: None (occurrence: None)
  Receive Date: 20070823
  Receipt Date: 20070823
  Transmission Date: 20080115
  Serious: Yes (Death)
  Sender: FDA-Public Use
  Company Number: None

PATIENT

DRUGS (1)
  1. COLISTIMETHATE [Suspect]
     Dosage: INJECTABLE

REACTIONS (5)
  - ACUTE RESPIRATORY DISTRESS SYNDROME [None]
  - ACUTE RESPIRATORY FAILURE [None]
  - INCREASED BRONCHIAL SECRETION [None]
  - MEDICATION ERROR [None]
  - MULTI-ORGAN FAILURE [None]
